FAERS Safety Report 4517896-5 (Version None)
Quarter: 2004Q4

REPORT INFORMATION
  Report Type: 
  Country: None (occurrence: None)
  Receive Date: 20041203
  Receipt Date: 20041129
  Transmission Date: 20050328
  Serious: Yes (Death, Life-Threatening, Other)
  Sender: FDA-Public Use
  Company Number: US-MERCK-0411USA04107

PATIENT
  Age: 63 Year
  Sex: Female

DRUGS (2)
  1. VIOXX [Suspect]
     Indication: ARTHRITIS
     Route: 048
     Dates: start: 20030901, end: 20031201
  2. ACCUPRIL [Concomitant]
     Route: 065

REACTIONS (4)
  - ARTHROPATHY [None]
  - CEREBROVASCULAR ACCIDENT [None]
  - GASTROINTESTINAL OBSTRUCTION [None]
  - VOMITING [None]
